FAERS Safety Report 18437760 (Version 3)
Quarter: 2020Q4

REPORT INFORMATION
  Report Type: Spontaneous
  Country: US (occurrence: US)
  Receive Date: 20201028
  Receipt Date: 20201106
  Transmission Date: 20210114
  Serious: Yes (Other)
  Sender: FDA-Public Use
  Company Number: US-PFIZER INC-2020280795

PATIENT
  Age: 65 Year
  Sex: Female
  Weight: 73.47 kg

DRUGS (1)
  1. CHANTIX [Suspect]
     Active Substance: VARENICLINE TARTRATE
     Dosage: 1 MG

REACTIONS (5)
  - Skin laceration [Unknown]
  - Contusion [Unknown]
  - Road traffic accident [Unknown]
  - Skin abrasion [Unknown]
  - Fracture [Unknown]
